FAERS Safety Report 23570537 (Version 1)
Quarter: 2024Q1

REPORT INFORMATION
  Report Type: Spontaneous
  Country: US (occurrence: None)
  Receive Date: 20240226
  Receipt Date: 20240226
  Transmission Date: 20240410
  Serious: Yes (Other)
  Sender: FDA-Public Use
  Company Number: None

PATIENT
  Age: 67 Year
  Sex: Male

DRUGS (1)
  1. PIRFENIDONE [Suspect]
     Active Substance: PIRFENIDONE
     Indication: Interstitial lung disease
     Dosage: 267MG TID ORAL?
     Route: 048
     Dates: start: 20240214, end: 20240215

REACTIONS (5)
  - Therapy interrupted [None]
  - Palpitations [None]
  - Dyspnoea [None]
  - Cough [None]
  - Lip exfoliation [None]

NARRATIVE: CASE EVENT DATE: 20240226
